FAERS Safety Report 25128972 (Version 1)
Quarter: 2025Q1

REPORT INFORMATION
  Report Type: Spontaneous
  Country: US (occurrence: None)
  Receive Date: 20250327
  Receipt Date: 20250327
  Transmission Date: 20250408
  Serious: Yes (Hospitalization)
  Sender: FDA-CTU
  Company Number: None

PATIENT
  Sex: Female

DRUGS (3)
  1. RETEVMO [Suspect]
     Active Substance: SELPERCATINIB
     Indication: Lung neoplasm malignant
     Route: 048
     Dates: start: 20241219
  2. RETEVMO [Suspect]
     Active Substance: SELPERCATINIB
     Indication: Bronchial carcinoma
  3. RETEVMO [Concomitant]
     Active Substance: SELPERCATINIB

REACTIONS (4)
  - Drug ineffective [None]
  - Pain [None]
  - Malignant neoplasm progression [None]
  - Therapy interrupted [None]
